FAERS Safety Report 12352236 (Version 1)
Quarter: 2016Q2

REPORT INFORMATION
  Report Type: Report from Study
  Country: ES (occurrence: ES)
  Receive Date: 20160510
  Receipt Date: 20160510
  Transmission Date: 20160815
  Serious: Yes (Other)
  Sender: FDA-Public Use
  Company Number: PHHY2016ES057019

PATIENT
  Sex: Male
  Weight: 102 kg

DRUGS (6)
  1. METFORMIN [Concomitant]
     Active Substance: METFORMIN HYDROCHLORIDE
     Indication: TYPE 2 DIABETES MELLITUS
     Dosage: 850 MG /8 H, UNK
     Route: 065
     Dates: start: 2007
  2. DAPAGLIFLOZIN [Concomitant]
     Active Substance: DAPAGLIFLOZIN
     Indication: TYPE 2 DIABETES MELLITUS
     Dosage: 25 MG/24H, UNK
     Route: 065
     Dates: start: 20160421
  3. LANTUS [Concomitant]
     Active Substance: INSULIN GLARGINE
     Indication: TYPE 2 DIABETES MELLITUS
     Dosage: 70 U/24 H, UNK
     Route: 065
     Dates: start: 20160406
  4. SOM230 [Suspect]
     Active Substance: PASIREOTIDE
     Indication: ACROMEGALY
     Dosage: UNK
     Route: 030
     Dates: start: 20160504
  5. SITAGLIPTINA [Concomitant]
     Indication: TYPE 2 DIABETES MELLITUS
     Dosage: 100 MG/24 H, UNK
     Route: 065
     Dates: start: 2007
  6. SOM230 [Suspect]
     Active Substance: PASIREOTIDE
     Indication: PITUITARY-DEPENDENT CUSHING^S SYNDROME
     Dosage: 40 MG, UNK
     Route: 030
     Dates: start: 20160315

REACTIONS (1)
  - Hyperglycaemia [Recovered/Resolved]
